FAERS Safety Report 25386426 (Version 1)
Quarter: 2025Q2

REPORT INFORMATION
  Report Type: Spontaneous
  Country: BR (occurrence: BR)
  Receive Date: 20250602
  Receipt Date: 20250602
  Transmission Date: 20250717
  Serious: Yes (Other)
  Sender: BIOMARIN
  Company Number: BR-BIOMARINAP-BR-2025-166245

PATIENT

DRUGS (1)
  1. NAGLAZYME [Suspect]
     Active Substance: GALSULFASE
     Indication: Product used for unknown indication
     Route: 042

REACTIONS (3)
  - Seizure [Unknown]
  - Influenza like illness [Unknown]
  - Pyrexia [Unknown]
